FAERS Safety Report 10665118 (Version 1)
Quarter: 2014Q4

REPORT INFORMATION
  Report Type: Spontaneous
  Country: DE (occurrence: DE)
  Receive Date: 20141219
  Receipt Date: 20141219
  Transmission Date: 20150529
  Serious: Yes (Other)
  Sender: FDA-Public Use
  Company Number: DE-WATSON-2014-26456

PATIENT
  Sex: Female

DRUGS (1)
  1. METOPROLOL (UNKNOWN) [Suspect]
     Active Substance: METOPROLOL
     Indication: HYPERTENSION
     Dosage: LONG TERM, 1 DF, DAILY
     Route: 048

REACTIONS (2)
  - Abortion [Unknown]
  - Maternal exposure during pregnancy [Unknown]
